FAERS Safety Report 11798286 (Version 3)
Quarter: 2020Q3

REPORT INFORMATION
  Report Type: Report from Study
  Country: RU (occurrence: RU)
  Receive Date: 20151203
  Receipt Date: 20151222
  Transmission Date: 20201105
  Serious: Yes (Life-Threatening, Hospitalization)
  Sender: FDA-Public Use
  Company Number: RU-JNJFOC-20151002775

PATIENT
  Age: 62 Year
  Sex: Female
  Weight: 85 kg

DRUGS (28)
  1. MULTIVITAMIN MULTIMINERAL [Concomitant]
     Indication: ANAEMIA
     Route: 048
     Dates: start: 20150920
  2. GRANOCYTE [Concomitant]
     Active Substance: LENOGRASTIM
     Indication: LEUKOPENIA
     Route: 058
     Dates: start: 20150821, end: 20150928
  3. GRANOCYTE [Concomitant]
     Active Substance: LENOGRASTIM
     Indication: LEUKOPENIA
     Route: 058
     Dates: start: 20150911, end: 20150911
  4. GRANOCYTE [Concomitant]
     Active Substance: LENOGRASTIM
     Indication: LEUKOPENIA
     Route: 058
     Dates: start: 20150904, end: 20150904
  5. GRANOCYTE [Concomitant]
     Active Substance: LENOGRASTIM
     Indication: LEUKOPENIA
     Route: 058
     Dates: start: 20150915, end: 20150915
  6. GRANOCYTE [Concomitant]
     Active Substance: LENOGRASTIM
     Indication: NEUTROPENIA
     Route: 058
     Dates: start: 20150821, end: 20150928
  7. GRANOCYTE [Concomitant]
     Active Substance: LENOGRASTIM
     Indication: NEUTROPENIA
     Route: 058
     Dates: start: 20150915, end: 20150915
  8. GRANOCYTE [Concomitant]
     Active Substance: LENOGRASTIM
     Indication: NEUTROPENIA
     Route: 058
     Dates: start: 20150925, end: 20150925
  9. MULTIVITAMINS [Concomitant]
     Active Substance: VITAMINS
     Indication: ANAEMIA
     Route: 048
     Dates: start: 20150925, end: 20151002
  10. DOXORUBICIN HYDROCHLORIDE. [Suspect]
     Active Substance: DOXORUBICIN HYDROCHLORIDE
     Indication: OVARIAN CANCER
     Route: 042
     Dates: start: 20151023
  11. GRANOCYTE [Concomitant]
     Active Substance: LENOGRASTIM
     Indication: NEUTROPENIA
     Route: 058
     Dates: start: 20150911, end: 20150911
  12. FERRIC HYDROXIDE POLYMALTOSE [Concomitant]
     Indication: THROMBOCYTOPENIA
     Route: 030
     Dates: start: 20150925, end: 20151002
  13. PHOSPHOLIPIDS [Concomitant]
     Active Substance: OMEGA-3 FATTY ACIDS
     Indication: PROPHYLAXIS
     Route: 048
     Dates: start: 20150925, end: 20151002
  14. HEPTRAL [Concomitant]
     Active Substance: ADEMETIONINE
     Indication: HEPATIC ENZYME INCREASED
     Route: 048
     Dates: start: 20150731
  15. PARACETAMOL [Concomitant]
     Active Substance: ACETAMINOPHEN
     Indication: RESPIRATORY DISORDER
     Route: 048
     Dates: start: 20150729, end: 20150804
  16. GRANOCYTE [Concomitant]
     Active Substance: LENOGRASTIM
     Indication: NEUTROPENIA
     Route: 058
     Dates: start: 20150904, end: 20150904
  17. DOXORUBICIN HYDROCHLORIDE. [Suspect]
     Active Substance: DOXORUBICIN HYDROCHLORIDE
     Indication: OVARIAN CANCER
     Route: 042
     Dates: start: 20150528, end: 20150918
  18. GRANOCYTE [Concomitant]
     Active Substance: LENOGRASTIM
     Indication: LEUKOPENIA
     Route: 058
     Dates: start: 20150930, end: 20150930
  19. ETAMSYLATE [Concomitant]
     Active Substance: ETHAMSYLATE
     Indication: HAEMORRHAGE PROPHYLAXIS
     Route: 048
     Dates: start: 20150925, end: 20151002
  20. TRABECTEDIN [Suspect]
     Active Substance: TRABECTEDIN
     Indication: OVARIAN CANCER
     Route: 042
     Dates: start: 20151023
  21. TRABECTEDIN [Suspect]
     Active Substance: TRABECTEDIN
     Indication: OVARIAN CANCER
     Route: 042
     Dates: start: 20150528, end: 20151002
  22. GRANOCYTE [Concomitant]
     Active Substance: LENOGRASTIM
     Indication: NEUTROPENIA
     Route: 058
     Dates: start: 20150930, end: 20150930
  23. HEPTRAL [Concomitant]
     Active Substance: ADEMETIONINE
     Indication: HEPATIC ENZYME INCREASED
     Route: 048
     Dates: start: 20150604
  24. HEPTRAL [Concomitant]
     Active Substance: ADEMETIONINE
     Indication: PROPHYLAXIS
     Route: 048
     Dates: start: 20150731
  25. HEPTRAL [Concomitant]
     Active Substance: ADEMETIONINE
     Indication: PROPHYLAXIS
     Route: 048
     Dates: start: 20150604
  26. PARACETAMOL [Concomitant]
     Active Substance: ACETAMINOPHEN
     Indication: RESPIRATORY DISORDER
     Route: 048
     Dates: start: 20150729
  27. GRANOCYTE [Concomitant]
     Active Substance: LENOGRASTIM
     Indication: LEUKOPENIA
     Route: 058
     Dates: start: 20150925, end: 20150925
  28. CALCIUM CARBONATE. [Concomitant]
     Active Substance: CALCIUM CARBONATE
     Indication: ANAEMIA
     Route: 048
     Dates: start: 20150925, end: 20151002

REACTIONS (4)
  - Thrombocytopenia [Recovered/Resolved]
  - Leukopenia [Recovered/Resolved]
  - Anaemia [Recovered/Resolved]
  - Anaemia [Recovered/Resolved]

NARRATIVE: CASE EVENT DATE: 20151002
